FAERS Safety Report 21950003 (Version 1)
Quarter: 2023Q1

REPORT INFORMATION
  Report Type: Report from Study
  Country: GB (occurrence: GB)
  Receive Date: 20230203
  Receipt Date: 20230203
  Transmission Date: 20230417
  Serious: Yes (Hospitalization)
  Sender: FDA-Public Use
  Company Number: GB-MYLANLABS-2023M1011696

PATIENT
  Age: 52 Year
  Sex: Female

DRUGS (1)
  1. LANSOPRAZOLE [Suspect]
     Active Substance: LANSOPRAZOLE
     Indication: Drug therapy
     Dosage: UNK
     Route: 065

REACTIONS (2)
  - Photosensitivity reaction [Unknown]
  - Chronic cutaneous lupus erythematosus [Unknown]
